FAERS Safety Report 17810560 (Version 5)
Quarter: 2020Q4

REPORT INFORMATION
  Report Type: Report from Study
  Country: None (occurrence: US)
  Receive Date: 20200521
  Receipt Date: 20201007
  Transmission Date: 20210113
  Serious: Yes (Other)
  Sender: FDA-Public Use
  Company Number: US-BIOVITRUM-2020US2683

PATIENT
  Age: 42 Year
  Sex: Male

DRUGS (6)
  1. KINERET [Suspect]
     Active Substance: ANAKINRA
     Indication: PERICARDITIS
     Route: 058
     Dates: start: 20200512
  2. KINERET [Suspect]
     Active Substance: ANAKINRA
     Indication: ARTHRALGIA
  3. KINERET [Suspect]
     Active Substance: ANAKINRA
     Indication: SJOGREN^S SYNDROME
  4. IBUPROFEN. [Concomitant]
     Active Substance: IBUPROFEN
  5. PREDNISONE. [Concomitant]
     Active Substance: PREDNISONE
  6. COLCHICINE. [Concomitant]
     Active Substance: COLCHICINE

REACTIONS (11)
  - Sjogren^s syndrome [Unknown]
  - Off label use [Not Recovered/Not Resolved]
  - Condition aggravated [Unknown]
  - Skin discolouration [Unknown]
  - Urticaria [Unknown]
  - Erythema [Unknown]
  - Chest pain [Unknown]
  - Injection site pain [Unknown]
  - Injection site reaction [Unknown]
  - Pericarditis [Unknown]
  - Arthralgia [Unknown]

NARRATIVE: CASE EVENT DATE: 20200513
